FAERS Safety Report 6397922-1 (Version None)
Quarter: 2009Q4

REPORT INFORMATION
  Report Type: 
  Country: None (occurrence: None)
  Receive Date: 20091006
  Receipt Date: 20090921
  Transmission Date: 20100525
  Serious: Yes (Other)
  Sender: FDA-Public Use
  Company Number: 2009002878

PATIENT
  Sex: Female

DRUGS (1)
  1. ERLOTINIB HYDROCHLORIDE [Suspect]
     Indication: CERVIX CARCINOMA
     Dosage: 150 MG QD, ORAL
     Route: 048

REACTIONS (11)
  - ANAEMIA [None]
  - DECREASED APPETITE [None]
  - DEHYDRATION [None]
  - DIARRHOEA [None]
  - FATIGUE [None]
  - HAEMATOTOXICITY [None]
  - INFECTION [None]
  - NAUSEA [None]
  - NEPHROPATHY TOXIC [None]
  - RASH [None]
  - VOMITING [None]
